FAERS Safety Report 8561574-2 (Version None)
Quarter: 2012Q3

REPORT INFORMATION
  Report Type: 
  Country: None (occurrence: None)
  Receive Date: 20120802
  Receipt Date: 20120727
  Transmission Date: 20120928
  Serious: Yes (Other)
  Sender: FDA-Public Use
  Company Number: CA-CELGENEUS-028-C5013-12053306

PATIENT
  Sex: Female

DRUGS (8)
  1. IRON [Concomitant]
     Indication: SUPPLEMENTATION THERAPY
     Dosage: 30 MILLIGRAM
     Route: 048
     Dates: start: 20100101
  2. TYLENOL (CAPLET) [Concomitant]
     Indication: BACK PAIN
     Dosage: 650 MILLIGRAM
     Route: 048
     Dates: start: 20120101
  3. CALCIUM [Concomitant]
     Indication: SUPPLEMENTATION THERAPY
     Dosage: 330 MILLIGRAM
     Route: 048
     Dates: start: 20100101
  4. UREMOL [Concomitant]
     Indication: DRY SKIN
     Route: 061
     Dates: start: 20110504
  5. DEXAMETHASONE [Suspect]
     Indication: MULTIPLE MYELOMA
     Dosage: 20 MILLIGRAM
     Route: 065
     Dates: start: 20101202
  6. ENOXAPARIN [Concomitant]
     Dosage: 30 MILLIGRAM
     Route: 058
     Dates: start: 20110826
  7. ASPIRIN [Concomitant]
     Dosage: 81 MILLIGRAM
     Route: 048
     Dates: start: 20120101, end: 20120313
  8. LENALIDOMIDE [Suspect]
     Indication: MULTIPLE MYELOMA
     Dosage: 10 MILLIGRAM
     Route: 048
     Dates: start: 20101202

REACTIONS (1)
  - BREAST CANCER [None]
